FAERS Safety Report 16733478 (Version 1)
Quarter: 2019Q3

REPORT INFORMATION
  Report Type: Spontaneous
  Country: GB (occurrence: GB)
  Receive Date: 20190823
  Receipt Date: 20190823
  Transmission Date: 20191005
  Serious: Yes (Other)
  Sender: FDA-Public Use
  Company Number: GB-TEVA-2019-GB-1095558

PATIENT
  Age: 80 Year
  Sex: Male
  Weight: 93 kg

DRUGS (23)
  1. PROCHLORPERAZINE. [Concomitant]
     Active Substance: PROCHLORPERAZINE
     Indication: NAUSEA
     Dosage: USE 1-2 UNDER TOP LIP UP TO TWICE DAILY
     Dates: start: 20190410, end: 20190416
  2. ADCAL [Concomitant]
     Dosage: FOR THE BONES
     Dates: start: 20180102
  3. LERCANIDIPINE HYDROCHLORIDE [Concomitant]
     Active Substance: LERCANIDIPINE HYDROCHLORIDE
     Dates: start: 20190529
  4. DOXAZOSIN [Concomitant]
     Active Substance: DOXAZOSIN MESYLATE
     Indication: HYPERTENSION
     Dates: start: 20190325, end: 20190422
  5. PREGABALIN. [Concomitant]
     Active Substance: PREGABALIN
     Indication: PAIN
     Dates: start: 20190507
  6. LEVOTHYROXINE. [Concomitant]
     Active Substance: LEVOTHYROXINE
     Indication: THYROID DISORDER
     Dates: start: 20180102
  7. ESOMEPRAZOLE. [Concomitant]
     Active Substance: ESOMEPRAZOLE MAGNESIUM
     Indication: HYPERCHLORHYDRIA
     Dates: start: 20180102
  8. RIVAROXABAN [Concomitant]
     Active Substance: RIVAROXABAN
     Indication: ANTICOAGULANT THERAPY
     Dates: start: 20180102
  9. ATORVASTATIN [Concomitant]
     Active Substance: ATORVASTATIN
     Dosage: FOR PRIMARY PREVENTION
     Dates: start: 20190111
  10. AMLODIPINE [Suspect]
     Active Substance: AMLODIPINE BESYLATE
     Indication: HYPERTENSION
     Dates: start: 20190318
  11. CIPROFLOXACIN. [Concomitant]
     Active Substance: CIPROFLOXACIN
     Dosage: FOR 6 WEEKS
     Dates: start: 20190507, end: 20190514
  12. DAKTACORT [Concomitant]
     Active Substance: HYDROCORTISONE\MICONAZOLE NITRATE
     Dosage: APPLY TO AFFECTED AREA
     Dates: start: 20190304, end: 20190305
  13. DICLOFENAC SODIUM. [Concomitant]
     Active Substance: DICLOFENAC SODIUM
     Dosage: APPLY
     Dates: start: 20190507, end: 20190521
  14. LAXIDO [Concomitant]
     Active Substance: POLYETHYLENE GLYCOL 3350\POTASSIUM CHLORIDE\SODIUM BICARBONATE\SODIUM CHLORIDE
     Indication: CONSTIPATION
     Dates: start: 20190415
  15. SOLIFENACIN [Concomitant]
     Active Substance: SOLIFENACIN
     Indication: BLADDER DISORDER
     Dosage: TAKE ONE OR TWO A DAY
     Dates: start: 20180102
  16. LOSARTAN. [Concomitant]
     Active Substance: LOSARTAN
     Indication: HYPERTENSION
     Dates: start: 20180102
  17. NEOMYCIN SULFATE. [Concomitant]
     Active Substance: NEOMYCIN SULFATE
     Dosage: APPLY WITH COTTON BUD ONCE TO EACH NOSTRIL
     Route: 045
     Dates: start: 20190417, end: 20190427
  18. FLUTICASONE FUROATE [Concomitant]
     Active Substance: FLUTICASONE FUROATE
     Dosage: TWO IN EACH NOSTRIL
     Route: 045
     Dates: start: 20180102
  19. ALFUZOSIN [Concomitant]
     Active Substance: ALFUZOSIN
     Indication: BLADDER DISORDER
     Dates: start: 20180102
  20. FUSIDIC ACID [Concomitant]
     Active Substance: FUSIDIC ACID
     Dosage: USE AS DIRECTED
     Dates: start: 20190517, end: 20190524
  21. FLECAINIDE ACETATE. [Concomitant]
     Active Substance: FLECAINIDE ACETATE
     Dosage: FOR THE HEART RHYTHM
     Dates: start: 20180102
  22. SILDENAFIL. [Concomitant]
     Active Substance: SILDENAFIL
     Dosage: ABOUT AN HOUR BEFORE NEEDED
     Dates: start: 20180102
  23. GABAPENTIN. [Concomitant]
     Active Substance: GABAPENTIN
     Dosage: UP TO THREE CAPSULES UP TO THREE TIMES A DAY
     Dates: start: 20180307, end: 20190318

REACTIONS (1)
  - Joint swelling [Not Recovered/Not Resolved]
